FAERS Safety Report 20650299 (Version 1)
Quarter: 2022Q1

REPORT INFORMATION
  Report Type: Spontaneous
  Country: FR (occurrence: FR)
  Receive Date: 20220329
  Receipt Date: 20220329
  Transmission Date: 20220423
  Serious: Yes (Other)
  Sender: FDA-Public Use
  Company Number: None

PATIENT
  Age: 37 Year
  Sex: Female
  Weight: 50 kg

DRUGS (3)
  1. PAXLOVID [Interacting]
     Active Substance: NIRMATRELVIR\RITONAVIR
     Indication: COVID-19 treatment
     Dosage: 2 DF OF PF-07321332 + 1 DF OF RITONAVIR 2X/DAY
     Route: 048
     Dates: start: 20220205, end: 20220210
  2. NEORAL [Interacting]
     Active Substance: CYCLOSPORINE
     Indication: Lung transplant
     Dosage: 110 MG, EVERY 12 HOURS
     Route: 048
  3. PREDNISONE [Interacting]
     Active Substance: PREDNISONE
     Indication: Lung transplant
     Dosage: 5 MG, 1X/DAY

REACTIONS (3)
  - Drug interaction [Recovered/Resolved]
  - Hyperglycaemia [Recovered/Resolved]
  - Drug level increased [Recovered/Resolved]

NARRATIVE: CASE EVENT DATE: 20220205
